FAERS Safety Report 4714315-0 (Version None)
Quarter: 2005Q3

REPORT INFORMATION
  Report Type: 
  Country: None (occurrence: None)
  Receive Date: 20050705
  Receipt Date: 20041105
  Transmission Date: 20060218
  Serious: Yes (Other)
  Sender: FDA-Public Use
  Company Number: 2004-0007576

PATIENT
  Sex: Male

DRUGS (6)
  1. VIREAD [Suspect]
     Indication: HIV INFECTION
     Dosage: 300 MG, 1 IN 1 D, ORAL
     Route: 048
     Dates: end: 20030613
  2. KALETRA [Concomitant]
  3. NEVIRAPINE [Concomitant]
  4. SEROSTIM [Concomitant]
  5. TESTOSTERONE [Concomitant]
  6. WELLBUTRIN [Concomitant]

REACTIONS (1)
  - FANCONI SYNDROME ACQUIRED [None]
